FAERS Safety Report 10010240 (Version 2)
Quarter: 2014Q1

REPORT INFORMATION
  Report Type: Spontaneous
  Country: US (occurrence: US)
  Receive Date: 20140313
  Receipt Date: 20140328
  Transmission Date: 20141002
  Serious: Yes (Other)
  Sender: FDA-Public Use
  Company Number: US-ELI_LILLY_AND_COMPANY-US201403002343

PATIENT
  Sex: Female

DRUGS (10)
  1. EVISTA [Suspect]
     Indication: PRODUCT USED FOR UNKNOWN INDICATION
     Dosage: UNK UNK, UNKNOWN
     Route: 065
  2. DOXYCYCLINE [Suspect]
     Indication: PRODUCT USED FOR UNKNOWN INDICATION
     Dosage: UNK, UNKNOWN
     Route: 065
  3. CALCIUM CARBONATE [Concomitant]
     Route: 065
  4. MELOXICAM [Concomitant]
     Dosage: UNK, UNKNOWN
     Route: 065
  5. NIFEDIPINE ER [Concomitant]
     Dosage: 17 MG, UNKNOWN
     Route: 065
  6. SERTRALINE HCL [Concomitant]
     Dosage: 100 MG, UNKNOWN
     Route: 065
  7. SPIRONOLACTONE [Concomitant]
     Dosage: 50 MG, UNKNOWN
     Route: 065
  8. VITAMIN D NOS [Concomitant]
     Dosage: 50000 IU, UNKNOWN
     Route: 065
  9. B12 [Concomitant]
     Dosage: UNK, UNKNOWN
     Route: 065
  10. IBUPROFEN [Concomitant]
     Dosage: UNK, UNKNOWN
     Route: 065

REACTIONS (5)
  - Pulmonary embolism [Unknown]
  - Chronic obstructive pulmonary disease [Not Recovered/Not Resolved]
  - Respiratory failure [Unknown]
  - Stevens-Johnson syndrome [Unknown]
  - Osteoporosis [Unknown]
